FAERS Safety Report 13006695 (Version 1)
Quarter: 2016Q4

REPORT INFORMATION
  Report Type: Spontaneous
  Country: US (occurrence: US)
  Receive Date: 20161207
  Receipt Date: 20161207
  Transmission Date: 20170207
  Serious: Yes (Other)
  Sender: FDA-Public Use
  Company Number: US-GLAXOSMITHKLINE-US2016179068

PATIENT
  Age: 64 Year
  Sex: Female

DRUGS (1)
  1. EXCEDRIN EXTRA STRENGTH [Suspect]
     Active Substance: ACETAMINOPHEN\ASPIRIN\CAFFEINE
     Indication: ILL-DEFINED DISORDER
     Dosage: UNK (2-3 PILLS AT ONCE)

REACTIONS (5)
  - Micturition disorder [Not Recovered/Not Resolved]
  - Intentional product use issue [Unknown]
  - Diabetes mellitus [Not Recovered/Not Resolved]
  - Incorrect dose administered [Unknown]
  - Arthralgia [Not Recovered/Not Resolved]
